FAERS Safety Report 11210669 (Version 1)
Quarter: 2015Q2

REPORT INFORMATION
  Report Type: Spontaneous
  Country: US (occurrence: US)
  Receive Date: 20150622
  Receipt Date: 20150622
  Transmission Date: 20150821
  Serious: No
  Sender: FDA-Public Use
  Company Number: -SAAVPROD-HECT-1000213

PATIENT
  Age: 62 Year
  Sex: Female

DRUGS (1)
  1. DOXERCALCIFEROL. [Suspect]
     Active Substance: DOXERCALCIFEROL
     Indication: HYPERPARATHYROIDISM
     Dosage: 20 MCG, 3X/W
     Route: 042

REACTIONS (1)
  - Blood parathyroid hormone abnormal [Unknown]
